FAERS Safety Report 12206276 (Version 1)
Quarter: 2016Q1

REPORT INFORMATION
  Report Type: Spontaneous
  Country: US (occurrence: US)
  Receive Date: 20160324
  Receipt Date: 20160324
  Transmission Date: 20160526
  Serious: Yes (Hospitalization)
  Sender: FDA-Public Use
  Company Number: US-SCIEGEN PHARMACEUTICALS INC-2016SCILIT00042

PATIENT

DRUGS (5)
  1. CHLORPROMAZINE. [Suspect]
     Active Substance: CHLORPROMAZINE
     Indication: PRODUCT USED FOR UNKNOWN INDICATION
     Dosage: 100 MG, BID
     Route: 065
  2. CLOZAPINE. [Interacting]
     Active Substance: CLOZAPINE
     Indication: PRODUCT USED FOR UNKNOWN INDICATION
     Dosage: 500 MG, QD
     Route: 065
  3. LAMOTRIGINE TABLETS [Suspect]
     Active Substance: LAMOTRIGINE
     Indication: PRODUCT USED FOR UNKNOWN INDICATION
     Dosage: 200 MG, QD
  4. CLOZAPINE. [Interacting]
     Active Substance: CLOZAPINE
     Dosage: 350 MG, QD
     Route: 065
  5. CLOZAPINE. [Interacting]
     Active Substance: CLOZAPINE
     Dosage: 400 MG, QD
     Route: 065

REACTIONS (13)
  - Intentional self-injury [Unknown]
  - Sedation [Unknown]
  - Orthostatic hypotension [Recovering/Resolving]
  - Drug level increased [Not Recovered/Not Resolved]
  - Disorientation [Unknown]
  - Anxiety [Unknown]
  - Tachyphrenia [Unknown]
  - Drug interaction [None]
  - Suicidal ideation [Unknown]
  - Hallucination, auditory [Unknown]
  - Homicidal ideation [Unknown]
  - Mood altered [Unknown]
  - Somnolence [Unknown]
